FAERS Safety Report 15164782 (Version 3)
Quarter: 2018Q4

REPORT INFORMATION
  Report Type: Spontaneous
  Country: US (occurrence: US)
  Receive Date: 20180719
  Receipt Date: 20181005
  Transmission Date: 20190204
  Serious: Yes (Other)
  Sender: FDA-Public Use
  Company Number: US-SA-2018SA194941

PATIENT
  Age: 44 Year
  Sex: Female

DRUGS (1)
  1. DUPIXENT [Suspect]
     Active Substance: DUPILUMAB
     Indication: DERMATITIS ATOPIC
     Dosage: 300 MG, QOW
     Route: 058
     Dates: start: 20180516

REACTIONS (10)
  - Rash [Unknown]
  - Eye pruritus [Unknown]
  - Acne [Unknown]
  - Skin exfoliation [Unknown]
  - Papule [Unknown]
  - Erythema [Recovered/Resolved]
  - Eye pain [Unknown]
  - Blepharitis [Unknown]
  - Eyelid irritation [Unknown]
  - Conjunctivitis [Unknown]

NARRATIVE: CASE EVENT DATE: 20180601
